FAERS Safety Report 8992732 (Version 1)
Quarter: 2013Q1

REPORT INFORMATION
  Report Type: Report from Study
  Country: JP (occurrence: JP)
  Receive Date: 20130102
  Receipt Date: 20130102
  Transmission Date: 20140127
  Serious: Yes (Hospitalization)
  Sender: FDA-Public Use
  Company Number: JP-ROCHE-1173031

PATIENT
  Age: 60 Year
  Sex: Female

DRUGS (10)
  1. TOCILIZUMAB [Suspect]
     Indication: RHEUMATOID ARTHRITIS
     Route: 041
     Dates: start: 20090121, end: 20090312
  2. TOCILIZUMAB [Suspect]
     Route: 041
     Dates: start: 20090409, end: 20090803
  3. TOCILIZUMAB [Suspect]
     Route: 041
     Dates: start: 20091026, end: 20091221
  4. TOCILIZUMAB [Suspect]
     Route: 041
     Dates: start: 20100217, end: 20100707
  5. PREDNISOLONE [Suspect]
     Indication: RHEUMATOID ARTHRITIS
     Route: 048
  6. PREDNISOLONE [Suspect]
     Route: 048
  7. PROGRAF [Concomitant]
     Indication: RHEUMATOID ARTHRITIS
     Route: 048
  8. BONALON [Concomitant]
     Indication: OSTEOPOROSIS
     Route: 048
  9. LIPITOR [Concomitant]
     Indication: LIPIDS ABNORMAL
     Route: 048
     Dates: start: 20100121
  10. PARIET [Concomitant]
     Indication: GASTROOESOPHAGEAL REFLUX DISEASE
     Route: 048
     Dates: start: 20100121

REACTIONS (4)
  - Pneumonia [Recovered/Resolved]
  - Interstitial lung disease [Unknown]
  - Lipids abnormal [Unknown]
  - Gastrooesophageal reflux disease [Unknown]
